FAERS Safety Report 4947662-8 (Version None)
Quarter: 2006Q1

REPORT INFORMATION
  Report Type: 
  Country: None (occurrence: None)
  Receive Date: 20060314
  Receipt Date: 20060301
  Transmission Date: 20060701
  Serious: Yes (Disabling)
  Sender: FDA-Public Use
  Company Number: 2006027887

PATIENT
  Age: 76 Year
  Sex: Male

DRUGS (3)
  1. CABERGOLINE [Suspect]
     Indication: PARKINSON'S DISEASE
     Dosage: 12 MG ORAL
     Route: 048
  2. SIMVASTATIN [Concomitant]
  3. PENTOXYFILLINE(PENTOXYFILLINE) [Concomitant]

REACTIONS (3)
  - HALLUCINATION [None]
  - INCORRECT DOSE ADMINISTERED [None]
  - OBSESSIVE-COMPULSIVE DISORDER [None]
